FAERS Safety Report 12828504 (Version 1)
Quarter: 2016Q4

REPORT INFORMATION
  Report Type: Spontaneous
  Country: US (occurrence: US)
  Receive Date: 20161007
  Receipt Date: 20161007
  Transmission Date: 20170207
  Serious: No
  Sender: FDA-Public Use
  Company Number: US-SA-2015SA141692

PATIENT
  Sex: Female

DRUGS (4)
  1. BACLOFEN. [Concomitant]
     Active Substance: BACLOFEN
     Dosage: 10 MG
  2. CIPROFLOXACIN HYDROCHLORIDE. [Concomitant]
     Active Substance: CIPROFLOXACIN HYDROCHLORIDE
  3. AUBAGIO [Suspect]
     Active Substance: TERIFLUNOMIDE
     Indication: MULTIPLE SCLEROSIS
     Route: 048
  4. IMIPRAMINE HYDROCHLORIDE. [Concomitant]
     Active Substance: IMIPRAMINE HYDROCHLORIDE

REACTIONS (5)
  - Alopecia [Not Recovered/Not Resolved]
  - Neuralgia [Not Recovered/Not Resolved]
  - Mucosal inflammation [Not Recovered/Not Resolved]
  - Insomnia [Not Recovered/Not Resolved]
  - Gait disturbance [Not Recovered/Not Resolved]
